FAERS Safety Report 24989492 (Version 2)
Quarter: 2025Q1

REPORT INFORMATION
  Report Type: Spontaneous
  Country: FR (occurrence: FR)
  Receive Date: 20250220
  Receipt Date: 20250311
  Transmission Date: 20250409
  Serious: Yes (Other)
  Sender: JOHNSON AND JOHNSON
  Company Number: FR-JNJFOC-20250162053

PATIENT
  Sex: Male

DRUGS (6)
  1. RYBREVANT [Suspect]
     Active Substance: AMIVANTAMAB-VMJW
     Indication: Lung neoplasm malignant
     Route: 065
     Dates: end: 20250226
  2. CARBOPLATIN [Concomitant]
     Active Substance: CARBOPLATIN
     Dates: end: 20241031
  3. CARBOPLATIN [Concomitant]
     Active Substance: CARBOPLATIN
     Dates: start: 20241107
  4. PEMETREXED [Concomitant]
     Active Substance: PEMETREXED
     Dates: end: 20241128
  5. PEMETREXED [Concomitant]
     Active Substance: PEMETREXED
     Dates: start: 20241226
  6. TAXOL [Concomitant]
     Active Substance: PACLITAXEL

REACTIONS (6)
  - Gastrointestinal toxicity [Unknown]
  - Rash [Unknown]
  - Disease progression [Unknown]
  - Skin toxicity [Unknown]
  - Inappropriate schedule of product administration [Unknown]
  - Off label use [Unknown]
